FAERS Safety Report 9982571 (Version 1)
Quarter: 2014Q1

REPORT INFORMATION
  Report Type: Report from Study
  Country: US (occurrence: US)
  Receive Date: 20140307
  Receipt Date: 20140307
  Transmission Date: 20141002
  Serious: No
  Sender: FDA-Public Use
  Company Number: US-ABBVIE-13P-163-1179233-00

PATIENT
  Sex: Female

DRUGS (11)
  1. HUMIRA [Suspect]
     Indication: COLITIS ULCERATIVE
     Dates: start: 20131107, end: 20131107
  2. HUMIRA [Suspect]
     Dates: start: 20131121, end: 20131121
  3. HUMIRA [Suspect]
     Dates: start: 20131205
  4. GLYBURIDE W/METFORMIN [Concomitant]
     Indication: DIABETES MELLITUS
     Dosage: 5-500MG
     Route: 048
  5. JANUVIA [Concomitant]
     Indication: DIABETES MELLITUS
     Route: 048
  6. DILTIAZEM [Concomitant]
     Indication: HYPERTENSION
     Route: 048
  7. LOSARTAN / HIDROCLOROTIAZIDA [Concomitant]
     Indication: HYPERTENSION
     Dosage: 100/12.5MG
     Route: 048
  8. VALACYCLOVIR HCL [Concomitant]
     Indication: HERPES ZOSTER
     Route: 048
  9. VALACYCLOVIR HCL [Concomitant]
     Indication: HERPES SIMPLEX
  10. VALACYCLOVIR HCL [Concomitant]
     Indication: CELLULITIS
  11. GABAPENTIN [Concomitant]
     Indication: PAIN

REACTIONS (1)
  - Injection site haemorrhage [Unknown]
